FAERS Safety Report 4684097-X (Version None)
Quarter: 2005Q2

REPORT INFORMATION
  Report Type: 
  Country: None (occurrence: None)
  Receive Date: 20050602
  Receipt Date: 20050420
  Transmission Date: 20051028
  Serious: No
  Sender: FDA-Public Use
  Company Number: 200510804BWH

PATIENT
  Age: 48 Year
  Sex: Male

DRUGS (5)
  1. LEVITRA [Suspect]
     Dosage: 20 MG, TOTAL DAILY, ORAL
     Route: 048
  2. NIASPAN [Concomitant]
  3. AMILORIDE HCL [Concomitant]
  4. ASPIRIN [Concomitant]
  5. TIMOLOL MALEATE [Concomitant]

REACTIONS (2)
  - HEADACHE [None]
  - NAUSEA [None]
